FAERS Safety Report 15235628 (Version 1)
Quarter: 2018Q3

REPORT INFORMATION
  Report Type: Spontaneous
  Country: US (occurrence: US)
  Receive Date: 20180803
  Receipt Date: 20180803
  Transmission Date: 20181010
  Serious: No
  Sender: FDA-Public Use
  Company Number: US-BAYER-2018-145125

PATIENT

DRUGS (2)
  1. MIRALAX [Suspect]
     Active Substance: POLYETHYLENE GLYCOL 3350
  2. FIBERCON [Concomitant]
     Active Substance: CALCIUM POLYCARBOPHIL

REACTIONS (2)
  - Product prescribing issue [None]
  - Abdominal distension [Unknown]
